FAERS Safety Report 6680840-9 (Version None)
Quarter: 2010Q2

REPORT INFORMATION
  Report Type: 
  Country: None (occurrence: None)
  Receive Date: 20100414
  Receipt Date: 20100413
  Transmission Date: 20101027
  Serious: Yes (Hospitalization)
  Sender: FDA-Public Use
  Company Number: US-ABBOTT-10P-163-0636025-00

PATIENT
  Sex: Male

DRUGS (7)
  1. HUMIRA [Suspect]
     Indication: PSORIASIS
     Route: 058
     Dates: start: 20090114, end: 20100315
  2. CALAN [Concomitant]
     Indication: HYPERTENSION
  3. SORITAINE [Concomitant]
     Indication: PSORIASIS
     Route: 061
  4. PREDNISONE TAB [Concomitant]
     Indication: DRUG USE FOR UNKNOWN INDICATION
     Dosage: LOW DOSE
  5. TRAZODONE HCL [Concomitant]
     Indication: DRUG USE FOR UNKNOWN INDICATION
  6. NEXIUM [Concomitant]
     Indication: DRUG USE FOR UNKNOWN INDICATION
  7. PROZAC [Concomitant]
     Indication: DEPRESSION

REACTIONS (12)
  - BLASTOMYCOSIS [None]
  - BLOOD CALCIUM ABNORMAL [None]
  - BRONCHITIS [None]
  - DYSPNOEA [None]
  - FUNGAL SEPSIS [None]
  - MALAISE [None]
  - PNEUMONIA [None]
  - RESPIRATORY TRACT INFECTION [None]
  - SMALLPOX [None]
  - STAPHYLOCOCCAL INFECTION [None]
  - VIRAL TEST POSITIVE [None]
  - WHITE BLOOD CELL COUNT INCREASED [None]
